FAERS Safety Report 16449695 (Version 3)
Quarter: 2019Q2

REPORT INFORMATION
  Report Type: Report from Study
  Country: None (occurrence: IL)
  Receive Date: 20190619
  Receipt Date: 20190627
  Transmission Date: 20190711
  Serious: Yes (Other)
  Sender: FDA-Public Use
  Company Number: IL-ABBVIE-19S-082-2825970-00

PATIENT
  Age: 77 Year
  Sex: Male

DRUGS (3)
  1. DUODOPA [Suspect]
     Active Substance: CARBIDOPA\LEVODOPA
     Indication: PARKINSON^S DISEASE
     Route: 050
     Dates: start: 20171109
  2. DUODOPA [Suspect]
     Active Substance: CARBIDOPA\LEVODOPA
     Dosage: CURRENT MD - 6 ML, CR- 2.8 ML/ HOUR, CURRENT ND- 2.3 ML CURRENT ED- 0.8 ML
     Route: 050
  3. DUODOPA [Suspect]
     Active Substance: CARBIDOPA\LEVODOPA
     Dosage: CURRENT: MD 6ML, CD 2.8ML/HOUR, NIGHT DOSE 2.3ML/HOUR, ED 0.8ML
     Route: 050

REACTIONS (2)
  - Hyporesponsive to stimuli [Unknown]
  - Apathy [Recovered/Resolved]

NARRATIVE: CASE EVENT DATE: 201906
